FAERS Safety Report 6742107-X (Version None)
Quarter: 2010Q2

REPORT INFORMATION
  Report Type: 
  Country: None (occurrence: None)
  Receive Date: 20100526
  Receipt Date: 20100518
  Transmission Date: 20101027
  Serious: Yes (Hospitalization, Other)
  Sender: FDA-Public Use
  Company Number: PHHO2010US07666

PATIENT
  Age: 44 Year
  Sex: Male
  Weight: 118.8 kg

DRUGS (10)
  1. DIOVAN [Suspect]
     Indication: HYPERTENSION
     Dosage: 320 MG, QD
     Route: 048
     Dates: start: 20090501, end: 20100409
  2. TEKTURNA [Suspect]
     Indication: HYPERTENSION
     Dosage: 150 MG, QD
     Dates: end: 20100409
  3. ZAROXOLYN [Concomitant]
     Indication: HYPERTENSION
     Dosage: UNK
     Dates: start: 20090701
  4. TOPROL-XL [Concomitant]
     Indication: HYPERTENSION
     Dosage: UNK
     Dates: start: 20090905
  5. LASIX [Concomitant]
     Indication: HYPERTENSION
     Dosage: UNK
     Dates: start: 20090601
  6. MICRO-K [Concomitant]
     Dosage: UNK
     Dates: start: 20090501
  7. VYTORIN [Concomitant]
     Indication: HYPERCHOLESTEROLAEMIA
     Dosage: UNK
     Dates: start: 20091002
  8. LANTUS [Concomitant]
     Indication: DIABETES MELLITUS
     Dosage: UNK
     Dates: start: 19980101
  9. NOVOLOG [Concomitant]
     Indication: DIABETES MELLITUS
     Dosage: UNK
     Dates: start: 19980101
  10. CYMBALTA [Concomitant]
     Indication: DEPRESSION
     Dosage: UNK
     Dates: start: 20090601

REACTIONS (7)
  - CELLULITIS [None]
  - HYPERKALAEMIA [None]
  - HYPERTENSION [None]
  - HYPOKALAEMIA [None]
  - MALAISE [None]
  - RENAL FAILURE ACUTE [None]
  - RHABDOMYOLYSIS [None]
